FAERS Safety Report 9893655 (Version 1)
Quarter: 2014Q1

REPORT INFORMATION
  Report Type: Spontaneous
  Country: US (occurrence: US)
  Receive Date: 20140213
  Receipt Date: 20140213
  Transmission Date: 20141002
  Serious: No
  Sender: FDA-Public Use
  Company Number: US-009507513-1401USA014572

PATIENT
  Age: 89 Year
  Sex: Female

DRUGS (2)
  1. ZIOPTAN [Suspect]
     Indication: GLAUCOMA
     Dosage: 1 GTT, IN BOTH EYES AT BED TIME
     Route: 047
     Dates: start: 20140122, end: 201401
  2. ZIOPTAN [Suspect]
     Dosage: 1 GTT, IN BOTH EYES AT BED TIME
     Route: 047
     Dates: start: 20130920

REACTIONS (3)
  - Diarrhoea [Recovered/Resolved]
  - Diarrhoea [Recovered/Resolved]
  - Muscle spasms [Recovered/Resolved]
